FAERS Safety Report 9675952 (Version 1)
Quarter: 2013Q4

REPORT INFORMATION
  Report Type: Spontaneous
  Country: US (occurrence: US)
  Receive Date: 20131107
  Receipt Date: 20131107
  Transmission Date: 20140711
  Serious: Yes (Hospitalization)
  Sender: FDA-Public Use
  Company Number: US-B.I. PHARMACEUTICALS,INC./RIDGEFIELD-2013-BI-35581BP

PATIENT
  Sex: Male
  Weight: 227 kg

DRUGS (3)
  1. PRADAXA [Suspect]
     Indication: ATRIAL FIBRILLATION
     Dosage: 300 MG
     Route: 048
  2. PRADAXA [Suspect]
     Indication: CEREBROVASCULAR ACCIDENT PROPHYLAXIS
  3. ANTIARRHYTHMICS [Concomitant]
     Indication: ATRIAL FIBRILLATION

REACTIONS (2)
  - Renal failure [Not Recovered/Not Resolved]
  - Gingival bleeding [Recovered/Resolved]
